FAERS Safety Report 16348557 (Version 5)
Quarter: 2019Q3

REPORT INFORMATION
  Report Type: Report from Study
  Country: LB (occurrence: LB)
  Receive Date: 20190523
  Receipt Date: 20190705
  Transmission Date: 20191004
  Serious: Yes (Hospitalization, Other)
  Sender: FDA-Public Use
  Company Number: PHHY2019LB112903

PATIENT
  Age: 48 Year
  Sex: Male

DRUGS (1)
  1. AFINITOR [Suspect]
     Active Substance: EVEROLIMUS
     Indication: NEUROENDOCRINE TUMOUR
     Dosage: 10 MG, QMO
     Route: 048
     Dates: end: 20190503

REACTIONS (10)
  - Fluid retention [Recovering/Resolving]
  - Drug intolerance [Unknown]
  - Oedema peripheral [Unknown]
  - Ascites [Unknown]
  - Abdominal distension [Recovering/Resolving]
  - Haematochezia [Unknown]
  - Pain [Unknown]
  - Inappropriate schedule of product administration [Unknown]
  - Liver disorder [Unknown]
  - Colon cancer [Unknown]

NARRATIVE: CASE EVENT DATE: 2014
